FAERS Safety Report 24034467 (Version 4)
Quarter: 2025Q1

REPORT INFORMATION
  Report Type: Spontaneous
  Country: ZA (occurrence: ZA)
  Receive Date: 20240701
  Receipt Date: 20250215
  Transmission Date: 20250408
  Serious: Yes (Other)
  Sender: HETERO
  Company Number: ZA-AMAROX PHARMA-HET2024ZA02021

PATIENT
  Age: 53 Year
  Sex: Female
  Weight: 56 kg

DRUGS (2)
  1. FINGOLIMOD [Suspect]
     Active Substance: FINGOLIMOD
     Indication: Multiple sclerosis
     Route: 048
     Dates: start: 20240521
  2. FINGOLIMOD [Suspect]
     Active Substance: FINGOLIMOD
     Route: 048
     Dates: start: 20240521

REACTIONS (4)
  - Toxicity to various agents [Recovered/Resolved]
  - Dizziness [Unknown]
  - Dizziness [Unknown]
  - Fatigue [Not Recovered/Not Resolved]

NARRATIVE: CASE EVENT DATE: 20240620
